FAERS Safety Report 25108728 (Version 2)
Quarter: 2025Q1

REPORT INFORMATION
  Report Type: Report from Study
  Country: US (occurrence: US)
  Receive Date: 20250322
  Receipt Date: 20250322
  Transmission Date: 20250409
  Serious: No
  Sender: ABBVIE
  Company Number: US-ABBVIE-6181604

PATIENT
  Age: 41 Year
  Sex: Female

DRUGS (2)
  1. RINVOQ [Suspect]
     Active Substance: UPADACITINIB
     Indication: Colitis ulcerative
     Dosage: TAKE 1 TABLET BY MOUTH. TAKE FOR 8 WEEKS. ?SWALLOW WHOLE, DO NOT CRUSH, CHEW, OR OPEN.
     Route: 048
     Dates: start: 202412
  2. BENEFIBER [Concomitant]
     Active Substance: STARCH, WHEAT
     Indication: Product used for unknown indication

REACTIONS (1)
  - Colitis ulcerative [Unknown]
